FAERS Safety Report 8036527-3 (Version None)
Quarter: 2012Q1

REPORT INFORMATION
  Report Type: 
  Country: None (occurrence: None)
  Receive Date: 20120109
  Receipt Date: 20120103
  Transmission Date: 20120608
  Serious: Yes (Hospitalization)
  Sender: FDA-Public Use
  Company Number: 2912SP000366

PATIENT
  Age: 69 Year
  Sex: Male

DRUGS (7)
  1. REBETOL [Suspect]
     Indication: HEPATIC CIRRHOSIS
     Dosage: 1000 MG;QD;PO
     Route: 048
     Dates: start: 20110701, end: 20111006
  2. REBETOL [Suspect]
     Indication: HEPATITIS C
     Dosage: 1000 MG;QD;PO
     Route: 048
     Dates: start: 20110701, end: 20111006
  3. ALDACTONE [Concomitant]
  4. VICTRELIS [Suspect]
     Indication: HEPATITIS C
     Dosage: 800 MG;TID;PO
     Route: 048
     Dates: start: 20110701, end: 20111006
  5. VICTRELIS [Suspect]
     Indication: HEPATIC CIRRHOSIS
     Dosage: 800 MG;TID;PO
     Route: 048
     Dates: start: 20110701, end: 20111006
  6. VIRAFERONPEG [Suspect]
     Indication: HEPATIC CIRRHOSIS
     Dosage: 100 MCG;QW;SC
     Route: 058
     Dates: start: 20110701, end: 20111006
  7. VIRAFERONPEG [Suspect]
     Indication: HEPATITIS C
     Dosage: 100 MCG;QW;SC
     Route: 058
     Dates: start: 20110701, end: 20111006

REACTIONS (2)
  - ASCITES [None]
  - ANAEMIA [None]
